FAERS Safety Report 6295290-7 (Version None)
Quarter: 2009Q3

REPORT INFORMATION
  Report Type: 
  Country: None (occurrence: None)
  Receive Date: 20090803
  Receipt Date: 20090625
  Transmission Date: 20100115
  Serious: No
  Sender: FDA-Public Use
  Company Number: US-BAYER-200925010NA

PATIENT
  Age: 65 Year
  Sex: Male
  Weight: 80 kg

DRUGS (4)
  1. ULTRAVIST (PHARMACY BULK) [Suspect]
     Indication: COMPUTERISED TOMOGRAM ABDOMEN
     Dosage: TOTAL DAILY DOSE: 120 ML
     Route: 042
     Dates: start: 20090624, end: 20090624
  2. BENICAR [Concomitant]
  3. SYNTHROID [Concomitant]
  4. EZ-EM BARIUM [Concomitant]
     Dosage: 1 HR PRIOR
     Route: 048
     Dates: start: 20090624, end: 20090624

REACTIONS (3)
  - NASAL CONGESTION [None]
  - NAUSEA [None]
  - VOMITING [None]
